FAERS Safety Report 24691851 (Version 2)
Quarter: 2024Q4

REPORT INFORMATION
  Report Type: Spontaneous
  Country: ES (occurrence: ES)
  Receive Date: 20241203
  Receipt Date: 20241216
  Transmission Date: 20250114
  Serious: Yes (Death, Hospitalization, Other)
  Sender: MYLAN
  Company Number: None

PATIENT
  Age: 92 Year
  Sex: Male

DRUGS (10)
  1. MIRTAZAPINE [Suspect]
     Active Substance: MIRTAZAPINE
     Indication: Insomnia
     Dosage: 15 MILLIGRAM, QD
     Route: 048
     Dates: start: 20240918
  2. QUETIAPINE [Suspect]
     Active Substance: QUETIAPINE
     Indication: Insomnia
     Dosage: 25 MILLIGRAM, QD
     Route: 048
     Dates: start: 20240918
  3. OMEPRAZOLE [Suspect]
     Active Substance: OMEPRAZOLE
     Indication: Product used for unknown indication
     Dosage: UNK
     Route: 065
  4. METAMIZOLE [Suspect]
     Active Substance: METAMIZOLE
     Indication: Product used for unknown indication
     Dosage: UNK
     Route: 065
  5. ACETAMINOPHEN [Suspect]
     Active Substance: ACETAMINOPHEN
     Indication: Product used for unknown indication
     Dosage: UNK
     Route: 065
  6. TEICOPLANIN [Suspect]
     Active Substance: TEICOPLANIN
     Indication: Post procedural infection
     Dosage: 800 MILLIGRAM, QD
     Route: 042
     Dates: start: 20240918, end: 20240925
  7. MEROPENEM [Suspect]
     Active Substance: MEROPENEM
     Indication: Post procedural infection
     Dosage: 2 GRAM, Q8H
     Route: 042
     Dates: start: 20240918
  8. ENOXAPARIN SODIUM [Suspect]
     Active Substance: ENOXAPARIN SODIUM
     Indication: Thrombosis prophylaxis
     Dosage: 40 MILLIGRAM, QD
     Route: 058
     Dates: start: 20240918
  9. ENOXAPARIN SODIUM [Suspect]
     Active Substance: ENOXAPARIN SODIUM
     Dosage: 20 MILLIGRAM, QD
     Route: 058
     Dates: start: 20241003
  10. CIPROFLOXACIN [Suspect]
     Active Substance: CIPROFLOXACIN
     Indication: Product used for unknown indication
     Dosage: UNK
     Route: 065
     Dates: start: 20240914

REACTIONS (10)
  - Sepsis [Fatal]
  - Eosinophilia [Not Recovered/Not Resolved]
  - Acute kidney injury [Not Recovered/Not Resolved]
  - Respiratory failure [Unknown]
  - Cardiac failure [Not Recovered/Not Resolved]
  - Disorientation [Unknown]
  - Generalised oedema [Unknown]
  - Sinus tachycardia [Unknown]
  - General physical health deterioration [Not Recovered/Not Resolved]
  - Off label use [Not Recovered/Not Resolved]

NARRATIVE: CASE EVENT DATE: 20240918
